FAERS Safety Report 8991245 (Version 1)
Quarter: 2012Q4

REPORT INFORMATION
  Report Type: Report from Study
  Country: CA (occurrence: CA)
  Receive Date: 20121231
  Receipt Date: 20121231
  Transmission Date: 20130627
  Serious: Yes (Hospitalization, Other)
  Sender: FDA-Public Use
  Company Number: CA-ROCHE-1169213

PATIENT
  Age: 38 Year
  Sex: Female

DRUGS (5)
  1. OMALIZUMAB [Suspect]
     Indication: ASTHMA
     Route: 058
     Dates: start: 20071213
  2. OMALIZUMAB [Suspect]
     Route: 058
     Dates: start: 20090921
  3. SYMBICORT [Concomitant]
  4. VENTOLIN [Concomitant]
  5. ATROVENT [Concomitant]

REACTIONS (9)
  - Asthma [Recovering/Resolving]
  - Pneumonia [Unknown]
  - Incision site infection [Not Recovered/Not Resolved]
  - Pulmonary congestion [Unknown]
  - Postoperative wound infection [Recovering/Resolving]
  - Sinusitis [Recovering/Resolving]
  - Pyrexia [Recovering/Resolving]
  - Nasopharyngitis [Unknown]
  - Fatigue [Unknown]
